FAERS Safety Report 17313621 (Version 2)
Quarter: 2020Q1

REPORT INFORMATION
  Report Type: Report from Study
  Country: None (occurrence: BR)
  Receive Date: 20200124
  Receipt Date: 20200128
  Transmission Date: 20200409
  Serious: Yes (Hospitalization, Other)
  Sender: FDA-Public Use
  Company Number: BR-ABBVIE-19K-020-3196179-00

PATIENT
  Age: 14 Year
  Sex: Male
  Weight: 42 kg

DRUGS (2)
  1. HUMIRA [Suspect]
     Active Substance: ADALIMUMAB
     Indication: CROHN^S DISEASE
     Dosage: 2 INJECTIONS
     Route: 058
     Dates: start: 20191106, end: 20191106
  2. HUMIRA [Suspect]
     Active Substance: ADALIMUMAB
     Route: 058
     Dates: start: 20191122, end: 2019

REACTIONS (5)
  - Drug ineffective [Unknown]
  - Gastrointestinal oedema [Unknown]
  - Flatulence [Not Recovered/Not Resolved]
  - Injection site pain [Unknown]
  - Intestinal obstruction [Unknown]

NARRATIVE: CASE EVENT DATE: 2019
